FAERS Safety Report 17482702 (Version 6)
Quarter: 2020Q4

REPORT INFORMATION
  Report Type: Report from Study
  Country: US (occurrence: US)
  Receive Date: 20200302
  Receipt Date: 20201215
  Transmission Date: 20210113
  Serious: Yes (Life-Threatening, Other)
  Sender: FDA-Public Use
  Company Number: NVSC2020US054281

PATIENT
  Age: 55 Year
  Sex: Female
  Weight: 68 kg

DRUGS (7)
  1. IBUPROFEN. [Concomitant]
     Active Substance: IBUPROFEN
     Indication: HEADACHE
     Dosage: UNK
     Route: 065
     Dates: start: 19970101
  2. OFATUMUMAB [Suspect]
     Active Substance: OFATUMUMAB
     Indication: RELAPSING MULTIPLE SCLEROSIS
     Dosage: 20 MG, Q4W
     Route: 058
     Dates: start: 20190717, end: 20200104
  3. CETACAINE ANESTHETIC [Concomitant]
     Active Substance: BENZOCAINE\BUTAMBEN\TETRACAINE HYDROCHLORIDE
     Indication: ENDOSCOPY
     Dosage: UNK
     Route: 065
     Dates: start: 20200123, end: 20200123
  4. VITAMIN D [Concomitant]
     Active Substance: VITAMIN D NOS
     Indication: GENERAL PHYSICAL CONDITION
     Dosage: UNK
     Route: 065
     Dates: start: 20170505
  5. CITALOPRAM HYDROBROMIDE. [Concomitant]
     Active Substance: CITALOPRAM HYDROBROMIDE
     Indication: DEPRESSION
     Dosage: UNK
     Route: 065
     Dates: start: 20190718
  6. OFATUMUMAB [Suspect]
     Active Substance: OFATUMUMAB
     Indication: RELAPSING MULTIPLE SCLEROSIS
     Dosage: UNK
     Route: 058
     Dates: start: 20190724
  7. PROPOFOL. [Concomitant]
     Active Substance: PROPOFOL
     Indication: SEDATIVE THERAPY
     Dosage: UNK
     Route: 065
     Dates: start: 20200123

REACTIONS (1)
  - Oesophageal squamous cell carcinoma [Recovered/Resolved]

NARRATIVE: CASE EVENT DATE: 20200123
